FAERS Safety Report 25468498 (Version 2)
Quarter: 2025Q2

REPORT INFORMATION
  Report Type: Spontaneous
  Country: IS (occurrence: IS)
  Receive Date: 20250623
  Receipt Date: 20250625
  Transmission Date: 20250717
  Serious: Yes (Other)
  Sender: TEVA
  Company Number: IS-TEVA-VS-3342802

PATIENT
  Age: 33 Year
  Sex: Male

DRUGS (3)
  1. QUETIAPINE [Suspect]
     Active Substance: QUETIAPINE
     Indication: Product used for unknown indication
     Route: 065
  2. QUETIAPINE [Suspect]
     Active Substance: QUETIAPINE
     Indication: Product used for unknown indication
     Route: 065
  3. QUETIAPINE [Suspect]
     Active Substance: QUETIAPINE
     Indication: Product used for unknown indication
     Route: 065

REACTIONS (12)
  - Hallucination [Unknown]
  - Chills [Unknown]
  - Somnambulism [Unknown]
  - Panic attack [Unknown]
  - Loss of consciousness [Unknown]
  - Wound haemorrhage [Unknown]
  - Fear [Unknown]
  - Pain [Unknown]
  - Amnesia [Unknown]
  - Dysphemia [Unknown]
  - Disorientation [Unknown]
  - Heart rate increased [Unknown]

NARRATIVE: CASE EVENT DATE: 20250113
